FAERS Safety Report 10926436 (Version 1)
Quarter: 2015Q1

REPORT INFORMATION
  Report Type: Spontaneous
  Country: US (occurrence: None)
  Receive Date: 20150316
  Receipt Date: 20150316
  Transmission Date: 20150721
  Serious: Yes (Other)
  Sender: FDA-Public Use
  Company Number: None

PATIENT
  Age: 7 Year
  Sex: Female
  Weight: 18.96 kg

DRUGS (1)
  1. GUANFACINE ER [Suspect]
     Active Substance: GUANFACINE
     Indication: ATTENTION DEFICIT/HYPERACTIVITY DISORDER
     Dosage: 1 TAB QD PO
     Route: 048
     Dates: start: 201501, end: 201503

REACTIONS (3)
  - Depression [None]
  - Suicidal ideation [None]
  - Abnormal behaviour [None]

NARRATIVE: CASE EVENT DATE: 20150309
